FAERS Safety Report 9243019 (Version 1)
Quarter: 2013Q2

REPORT INFORMATION
  Report Type: Spontaneous
  Country: DE (occurrence: DE)
  Receive Date: 20130419
  Receipt Date: 20130419
  Transmission Date: 20140414
  Serious: Yes (Other)
  Sender: FDA-Public Use
  Company Number: DE-ABBOTT-13P-062-1078494-00

PATIENT
  Age: 42 Year
  Sex: Female
  Weight: 65 kg

DRUGS (4)
  1. HUMIRA [Suspect]
     Indication: TUMOUR NECROSIS FACTOR RECEPTOR-ASSOCIATED PERIODIC SYNDROME
     Route: 058
     Dates: start: 20120912
  2. HUMIRA [Suspect]
     Indication: CREST SYNDROME
  3. EUTHYROX [Concomitant]
     Indication: AUTOIMMUNE THYROIDITIS
     Dosage: 88 MCG DAILY
     Dates: start: 1997
  4. SELENASE [Concomitant]
     Indication: PRODUCT USED FOR UNKNOWN INDICATION
     Dosage: 300 MCG DAILY

REACTIONS (2)
  - Abortion spontaneous [Unknown]
  - Off label use [Unknown]
